FAERS Safety Report 6755020-9 (Version None)
Quarter: 2010Q2

REPORT INFORMATION
  Report Type: 
  Country: None (occurrence: None)
  Receive Date: 20100602
  Receipt Date: 20100524
  Transmission Date: 20101027
  Serious: Yes (Death)
  Sender: FDA-Public Use
  Company Number: 012431

PATIENT
  Sex: Male
  Weight: 90.7 kg

DRUGS (2)
  1. KEPPRA [Suspect]
     Indication: CONVULSION
     Dosage: (1500 MG QD, IN THE MORNINGS ORAL)
     Route: 048
     Dates: start: 20080101, end: 20100523
  2. DEPAKOTE [Concomitant]

REACTIONS (2)
  - INJURY [None]
  - MEDICATION ERROR [None]
